FAERS Safety Report 6827045-6 (Version None)
Quarter: 2010Q3

REPORT INFORMATION
  Report Type: 
  Country: None (occurrence: None)
  Receive Date: 20100709
  Receipt Date: 20100630
  Transmission Date: 20110219
  Serious: Yes (Other)
  Sender: FDA-Public Use
  Company Number: JP-MERCK-1002USA02283

PATIENT
  Age: 49 Year
  Sex: Male

DRUGS (9)
  1. EMEND [Suspect]
     Indication: PROPHYLAXIS OF NAUSEA AND VOMITING
     Route: 048
     Dates: start: 20100210, end: 20100210
  2. BRIPLATIN [Concomitant]
     Route: 065
     Dates: start: 20100210, end: 20100210
  3. FLUOROURACIL [Concomitant]
     Route: 065
     Dates: start: 20100210, end: 20100214
  4. TAKEPRON [Concomitant]
     Route: 065
     Dates: start: 20100204, end: 20100217
  5. OPSO [Concomitant]
     Route: 065
     Dates: start: 20100208, end: 20100227
  6. PEPCID RPD [Concomitant]
     Route: 048
     Dates: start: 20100210, end: 20100211
  7. RAMELTEON [Concomitant]
     Route: 065
     Dates: start: 20100210, end: 20100210
  8. GRANISETRON HYDROCHLORIDE [Concomitant]
     Route: 065
     Dates: start: 20100210, end: 20100210
  9. PRIMPERAN TAB [Concomitant]
     Route: 065
     Dates: start: 20100210, end: 20100210

REACTIONS (2)
  - CONVULSION [None]
  - GRAND MAL CONVULSION [None]
